FAERS Safety Report 9465035 (Version 1)
Quarter: 2013Q3

REPORT INFORMATION
  Report Type: Spontaneous
  Country: US (occurrence: US)
  Receive Date: 20130819
  Receipt Date: 20130819
  Transmission Date: 20140515
  Serious: No
  Sender: FDA-Public Use
  Company Number: US-LEHIGH_VALLEY-USA-POI0580201300001

PATIENT
  Age: 55 Year
  Sex: Female

DRUGS (1)
  1. OXYCODONE HCL CAPSULES [Suspect]
     Indication: POSTOPERATIVE ANALGESIA

REACTIONS (2)
  - Depression [Recovered/Resolved]
  - Pruritus [Recovered/Resolved]
